FAERS Safety Report 8977921 (Version 3)
Quarter: 2013Q1

REPORT INFORMATION
  Report Type: Spontaneous
  Country: PR (occurrence: PR)
  Receive Date: 20121219
  Receipt Date: 20130117
  Transmission Date: 20140127
  Serious: Yes (Other)
  Sender: FDA-Public Use
  Company Number: PR-ABBOTT-12P-131-1023619-00

PATIENT
  Age: 81 None
  Sex: Female

DRUGS (5)
  1. HUMIRA [Suspect]
     Indication: RHEUMATOID ARTHRITIS
     Route: 058
     Dates: end: 201211
  2. HUMIRA [Suspect]
     Route: 058
  3. NEURONTIN [Concomitant]
     Indication: NEUROPATHY PERIPHERAL
  4. ATACAND [Concomitant]
     Indication: HYPERTENSION
     Dosage: 1 TABLET DAILY
  5. ACTONEL [Concomitant]
     Indication: OSTEOPOROSIS
     Dosage: 1 TABLET MONTHLY

REACTIONS (6)
  - Osteoporosis [Recovered/Resolved]
  - Arthralgia [Recovered/Resolved]
  - Meniscus injury [Recovered/Resolved]
  - Arthritis [Recovered/Resolved]
  - Herpes zoster [Recovering/Resolving]
  - Headache [Recovering/Resolving]
